FAERS Safety Report 10173523 (Version 2)
Quarter: 2014Q2

REPORT INFORMATION
  Report Type: Spontaneous
  Country: NO (occurrence: NO)
  Receive Date: 20140515
  Receipt Date: 20140515
  Transmission Date: 20141212
  Serious: Yes (Other)
  Sender: FDA-Public Use
  Company Number: NO-ROCHE-1364202

PATIENT
  Sex: Female

DRUGS (10)
  1. MABTHERA [Suspect]
     Indication: RHEUMATOID ARTHRITIS
     Route: 065
     Dates: start: 2007
  2. METHOTREXATE [Concomitant]
     Dosage: ON WEDNESDAYS
     Route: 065
  3. FOLIC ACID [Concomitant]
     Dosage: 1 MG X1 EXCEPT WEDNESDAYS
     Route: 065
  4. CALCIGRAN FORTE [Concomitant]
     Dosage: 1000/800MG?VESPER
     Route: 065
  5. SIMVASTATIN [Concomitant]
     Route: 065
  6. LORATADINE [Concomitant]
     Dosage: VESPER
     Route: 065
  7. NOZINAN [Concomitant]
     Dosage: VESPER
     Route: 065
  8. NAPROXEN [Concomitant]
     Dosage: VESPER OR TWICE A DAY
     Route: 065
  9. PANODIL [Concomitant]
     Route: 065
  10. PARALGIN FORTE (CODEINE PHOSPHATE/PARACETAMOL) [Concomitant]
     Route: 065

REACTIONS (1)
  - Arrhythmia [Not Recovered/Not Resolved]
